FAERS Safety Report 22654951 (Version 1)
Quarter: 2023Q2

REPORT INFORMATION
  Report Type: Report from Study
  Country: CA (occurrence: CA)
  Receive Date: 20230629
  Receipt Date: 20230629
  Transmission Date: 20230721
  Serious: Yes (Death)
  Sender: FDA-Public Use
  Company Number: CA-ABBVIE-5179802

PATIENT
  Sex: Male
  Weight: 79.2 kg

DRUGS (2)
  1. VENCLEXTA [Suspect]
     Active Substance: VENETOCLAX
     Indication: Acute myeloid leukaemia
     Dosage: FORM STRENGTH: 100 MG
     Route: 048
     Dates: start: 20230508, end: 20230515
  2. AZACITIDINE [Suspect]
     Active Substance: AZACITIDINE
     Indication: Acute myeloid leukaemia
     Route: 058
     Dates: start: 20230508, end: 20230514

REACTIONS (4)
  - Malaise [Fatal]
  - Pneumonia [Not Recovered/Not Resolved]
  - Acute myeloid leukaemia [Fatal]
  - Infection [Unknown]

NARRATIVE: CASE EVENT DATE: 20230101
